FAERS Safety Report 22055080 (Version 2)
Quarter: 2023Q1

REPORT INFORMATION
  Report Type: Report from Study
  Country: IT (occurrence: IT)
  Receive Date: 20230302
  Receipt Date: 20230315
  Transmission Date: 20230417
  Serious: Yes (Hospitalization)
  Sender: FDA-Public Use
  Company Number: IT-MIRATI-MT2023CT03562

PATIENT

DRUGS (12)
  1. ADAGRASIB [Suspect]
     Active Substance: ADAGRASIB
     Indication: Non-small cell lung cancer
     Dosage: 400 MG, BID
     Route: 048
     Dates: start: 20230110
  2. ADAGRASIB [Suspect]
     Active Substance: ADAGRASIB
     Dosage: 400 MG, ONCE
     Route: 048
     Dates: end: 20230207
  3. KEYTRUDA [Suspect]
     Active Substance: PEMBROLIZUMAB
     Indication: Non-small cell lung cancer
     Dosage: 200 MG, Q21DAY
     Route: 042
     Dates: start: 20230110, end: 20230131
  4. ATENOLOL [Concomitant]
     Active Substance: ATENOLOL
     Indication: Hypertension
     Dosage: 100 MG (1/4 TABLET), QD
     Route: 048
     Dates: start: 2010
  5. ACETAMINOPHEN [Concomitant]
     Active Substance: ACETAMINOPHEN
     Indication: Product used for unknown indication
     Dosage: 1000 MG, TID (8AM, 4PM, 10PM)
     Route: 048
     Dates: start: 20221114
  6. LANSOPRAZOLE [Concomitant]
     Active Substance: LANSOPRAZOLE
     Indication: Product used for unknown indication
     Dosage: 30 MG, QD; HALF HOUR BEFORE BREAKFAST
     Route: 048
     Dates: start: 20221114
  7. MEDROL [Concomitant]
     Active Substance: METHYLPREDNISOLONE
     Indication: Product used for unknown indication
     Dosage: 16 MG, QD, AFTER BREAKFAST
     Route: 048
     Dates: start: 20221114, end: 20230202
  8. PALEXIA [Concomitant]
     Active Substance: TAPENTADOL HYDROCHLORIDE
     Indication: Product used for unknown indication
     Dosage: 50 MG, BID
     Route: 048
     Dates: start: 20221222
  9. FENTANYL CITRATE [Concomitant]
     Active Substance: FENTANYL CITRATE
     Indication: Pain
     Dosage: 100 UG, QID
     Dates: start: 20221222
  10. CAMPHOR\HERBALS [Concomitant]
     Active Substance: CAMPHOR\HERBALS
     Indication: Product used for unknown indication
     Dosage: 1 DF, TID
     Dates: start: 20230207
  11. XANAX [Concomitant]
     Active Substance: ALPRAZOLAM
     Indication: Product used for unknown indication
     Dosage: 0.25 MG, QD
     Route: 048
     Dates: start: 20230207
  12. DIETARY SUPPLEMENT\HERBALS\MILK THISTLE [Concomitant]
     Active Substance: DIETARY SUPPLEMENT\HERBALS\MILK THISTLE
     Indication: Product used for unknown indication
     Dosage: 140 MG, BID
     Route: 048
     Dates: start: 20230207

REACTIONS (4)
  - Hypertransaminasaemia [Recovered/Resolved]
  - Gamma-glutamyltransferase increased [Not Recovered/Not Resolved]
  - COVID-19 [Recovered/Resolved]
  - Pneumonia [Recovered/Resolved with Sequelae]

NARRATIVE: CASE EVENT DATE: 20230207
